FAERS Safety Report 4375368-5 (Version None)
Quarter: 2004Q2

REPORT INFORMATION
  Report Type: 
  Country: None (occurrence: None)
  Receive Date: 20040607
  Receipt Date: 20040525
  Transmission Date: 20050107
  Serious: Yes (Other)
  Sender: FDA-Public Use
  Company Number: 163-20785-04050583

PATIENT
  Age: 21 Year
  Sex: Female

DRUGS (6)
  1. THALOMID [Suspect]
     Indication: ARTERIOVENOUS MALFORMATION
     Dosage: 100-1000 MG INCREASED WEEKLY
     Dates: start: 20030101, end: 20030801
  2. CELEBREX [Concomitant]
  3. NEURONTIN [Concomitant]
  4. BACTRIM [Concomitant]
  5. COLACE (DOCUSATE SODIUM) [Concomitant]
  6. LEXAPRIL [Concomitant]

REACTIONS (4)
  - BENIGN INTRACRANIAL HYPERTENSION [None]
  - DIPLOPIA [None]
  - PAPILLOEDEMA [None]
  - VISION BLURRED [None]
